FAERS Safety Report 5949705-1 (Version None)
Quarter: 2008Q4

REPORT INFORMATION
  Report Type: 
  Country: None (occurrence: None)
  Receive Date: 20081021
  Receipt Date: 20080320
  Transmission Date: 20090506
  Serious: Yes (Other)
  Sender: FDA-Public Use
  Company Number: HQWYE893313JUL06

PATIENT
  Age: 50 Year
  Sex: Female

DRUGS (1)
  1. PREMARIN [Suspect]
     Dosage: .625 MG, 120 MOS. (10 YEARS)
     Dates: start: 19800101, end: 19900101

REACTIONS (1)
  - BREAST CANCER [None]
